FAERS Safety Report 21745728 (Version 2)
Quarter: 2022Q4

REPORT INFORMATION
  Report Type: Other
  Country: AR (occurrence: None)
  Receive Date: 20221219
  Receipt Date: 20221223
  Transmission Date: 20230113
  Serious: Yes (Other)
  Sender: FDA-Public Use
  Company Number: AR-ROCHE-3241850

PATIENT
  Sex: Male

DRUGS (1)
  1. ALECENSA [Suspect]
     Active Substance: ALECTINIB HYDROCHLORIDE
     Indication: Lung neoplasm malignant
     Dosage: DOSE AND FREQUENCY WERE UNKNOWN
     Route: 048
     Dates: start: 20181112

REACTIONS (2)
  - Hypertension [Unknown]
  - Treatment noncompliance [Unknown]
